FAERS Safety Report 14244453 (Version 3)
Quarter: 2018Q1

REPORT INFORMATION
  Report Type: Report from Study
  Country: DE (occurrence: DE)
  Receive Date: 20171201
  Receipt Date: 20180121
  Transmission Date: 20180508
  Serious: Yes (Hospitalization, Other)
  Sender: FDA-Public Use
  Company Number: PHHY2017DE113697

PATIENT
  Sex: Female
  Weight: 101 kg

DRUGS (19)
  1. CALCIPOTRIENE AND BETAMETHASONE DIPROPIONATE [Concomitant]
     Active Substance: BETAMETHASONE DIPROPIONATE\CALCIPOTRIENE
     Indication: PSORIASIS
     Dosage: UNK, QD
     Route: 061
     Dates: start: 20170719
  2. UDC [Concomitant]
     Indication: HYPERCHOLESTEROLAEMIA
     Dosage: 1 DF, BID
     Route: 048
     Dates: start: 2011
  3. SIMVASTATIN. [Concomitant]
     Active Substance: SIMVASTATIN
     Indication: HYPERCHOLESTEROLAEMIA
     Dosage: 0.5 DF, QD
     Route: 048
     Dates: start: 2011
  4. COSENTYX [Suspect]
     Active Substance: SECUKINUMAB
     Dosage: 300 MG, (PER APPLICATION, PRE-FILLED PEN)
     Route: 065
     Dates: start: 20171004
  5. BISOPROLOL [Concomitant]
     Active Substance: BISOPROLOL
     Indication: HYPERTENSION
     Dosage: 0.5 DF, BID
     Route: 048
     Dates: start: 2014
  6. JANUVIA [Concomitant]
     Active Substance: SITAGLIPTIN PHOSPHATE
     Indication: PRODUCT USED FOR UNKNOWN INDICATION
     Dosage: 50 MG, BID
     Route: 065
  7. COSENTYX [Suspect]
     Active Substance: SECUKINUMAB
     Indication: PSORIASIS
     Dosage: 300 MG, PER APPLICATION
     Route: 065
     Dates: start: 20170712
  8. INSULIN HUMINSULIN BASAL [Concomitant]
     Indication: TYPE 2 DIABETES MELLITUS
     Dosage: 100 IU (80 IU, 20 IU, 60IU), UNK
     Route: 058
     Dates: start: 2006
  9. ACTRAPHANE [Concomitant]
     Active Substance: INSULIN HUMAN
     Indication: PRODUCT USED FOR UNKNOWN INDICATION
     Route: 065
  10. MELPERONE [Concomitant]
     Active Substance: MELPERONE
     Indication: DEPRESSION
     Dosage: 50 MG, PRN
     Route: 048
     Dates: start: 201612
  11. FLUOXETINE [Concomitant]
     Active Substance: FLUOXETINE HYDROCHLORIDE
     Indication: DEPRESSION
     Dosage: 1.5 DF, QD (1 1/2-0-0)
     Route: 048
     Dates: start: 2014
  12. METFORMIN [Concomitant]
     Active Substance: METFORMIN HYDROCHLORIDE
     Indication: TYPE 2 DIABETES MELLITUS
     Dosage: 1 DF, BID
     Route: 048
     Dates: start: 2006
  13. NYSTATIN. [Concomitant]
     Active Substance: NYSTATIN
     Indication: PRODUCT USED FOR UNKNOWN INDICATION
     Dosage: UNK UNK, QID
     Route: 065
  14. CARBAMAZEPINE. [Concomitant]
     Active Substance: CARBAMAZEPINE
     Indication: DEPRESSION
     Dosage: 1 DF, BID
     Route: 048
     Dates: start: 2014
  15. SIFROL [Concomitant]
     Active Substance: PRAMIPEXOLE
     Indication: RESTLESS LEGS SYNDROME
     Dosage: 1 DF, QD
     Route: 048
     Dates: start: 2015
  16. COSENTYX [Suspect]
     Active Substance: SECUKINUMAB
     Dosage: 300 MG, (PER APPLICATION, PRE-FILLED PEN)
     Route: 065
     Dates: start: 20171107, end: 20171107
  17. RANITIDIN ^BASICS^ [Concomitant]
     Indication: PROPHYLAXIS AGAINST GASTROINTESTINAL ULCER
     Dosage: 2 DF, QD
     Route: 048
     Dates: start: 2012
  18. COSENTYX [Suspect]
     Active Substance: SECUKINUMAB
     Dosage: 300 MG, (PER APPLICATION, PRE-FILLED PEN)
     Route: 065
     Dates: start: 20170905
  19. QUETIAPINE. [Concomitant]
     Active Substance: QUETIAPINE
     Indication: DEPRESSION
     Dosage: 1 DF, QD
     Route: 048
     Dates: start: 2011

REACTIONS (26)
  - Nasal inflammation [Recovered/Resolved]
  - Gastritis erosive [Recovered/Resolved]
  - Gastritis [Unknown]
  - Diabetic gastropathy [Recovered/Resolved]
  - General physical condition abnormal [Recovered/Resolved]
  - Angular cheilitis [Recovered/Resolved]
  - Oesophageal candidiasis [Recovered/Resolved]
  - Gastric atony [Unknown]
  - Dehydration [Unknown]
  - Dry skin [Unknown]
  - Vulvovaginal candidiasis [Recovered/Resolved]
  - Decreased appetite [Unknown]
  - Tongue dry [Unknown]
  - Ascites [Recovered/Resolved]
  - Oral candidiasis [Recovered/Resolved]
  - Oesophagitis [Recovered/Resolved]
  - Weight decreased [Unknown]
  - Gastric disorder [Recovered/Resolved]
  - Mucosal dryness [Unknown]
  - Blood glucose increased [Recovered/Resolved]
  - Urticaria [Recovered/Resolved]
  - Vomiting [Unknown]
  - Oesophageal ulcer [Unknown]
  - Nausea [Unknown]
  - Gastric mucosa erythema [Unknown]
  - Oral candidiasis [Recovered/Resolved]

NARRATIVE: CASE EVENT DATE: 20170713
